FAERS Safety Report 8506606-2 (Version None)
Quarter: 2012Q3

REPORT INFORMATION
  Report Type: 
  Country: None (occurrence: None)
  Receive Date: 20120712
  Receipt Date: 20120703
  Transmission Date: 20120928
  Serious: Yes (Other)
  Sender: FDA-Public Use
  Company Number: US-BRISTOL-MYERS SQUIBB COMPANY-16734931

PATIENT
  Age: 65 Year
  Sex: Male

DRUGS (2)
  1. LITHIUM CARBONATE [Suspect]
  2. ABILIFY [Suspect]
     Dates: start: 20120623

REACTIONS (1)
  - BLOOD POTASSIUM INCREASED [None]
